FAERS Safety Report 5653483-3 (Version None)
Quarter: 2008Q1

REPORT INFORMATION
  Report Type: 
  Country: None (occurrence: None)
  Receive Date: 20080306
  Receipt Date: 20080228
  Transmission Date: 20080703
  Serious: Yes (Other)
  Sender: FDA-Public Use
  Company Number: BR-ALLERGAN-0802573US

PATIENT
  Age: 25 Year
  Sex: Female

DRUGS (3)
  1. LUMIGAN [Suspect]
     Indication: GLAUCOMA
     Route: 047
  2. ALPHAGAN [Suspect]
     Indication: GLAUCOMA
     Route: 047
  3. PILOCARPINA COLIRIO 4% [Suspect]
     Indication: GLAUCOMA
     Dosage: UNK, UNK
     Route: 047

REACTIONS (1)
  - INTRAOCULAR PRESSURE INCREASED [None]
